FAERS Safety Report 8931466 (Version 2)
Quarter: 2013Q2

REPORT INFORMATION
  Report Type: Report from Study
  Country: IT (occurrence: IT)
  Receive Date: 20121128
  Receipt Date: 20130513
  Transmission Date: 20140414
  Serious: Yes (Other)
  Sender: FDA-Public Use
  Company Number: PHHY2012IT108740

PATIENT
  Age: 61 Year
  Sex: Male

DRUGS (9)
  1. CERTICAN [Suspect]
     Indication: HEART TRANSPLANT
     Dosage: 1.5 MG
     Route: 048
     Dates: start: 20060110, end: 20130419
  2. SANDIMMUN NEORAL [Concomitant]
     Dosage: UNK
  3. ZESTRIL [Concomitant]
     Dosage: UNK UKN, UNK
  4. DELTACORTENE [Concomitant]
     Dosage: UNK UKN, UNK
  5. CARDURA [Concomitant]
     Dosage: UNK UKN, UNK
  6. REOMAX [Concomitant]
     Dosage: UNK UKN, UNK
  7. KAYEXALATE [Concomitant]
     Dosage: UNK UKN, UNK
  8. LYRICA [Concomitant]
     Dosage: UNK UKN, UNK
  9. ACETYLSALICYLIC ACID W/ALUMINIUM/MAGNESIUM [Concomitant]

REACTIONS (2)
  - Renal failure chronic [Not Recovered/Not Resolved]
  - Dyslipidaemia [Not Recovered/Not Resolved]
